FAERS Safety Report 11297485 (Version 1)
Quarter: 2015Q3

REPORT INFORMATION
  Report Type: Spontaneous
  Country: US (occurrence: US)
  Receive Date: 20150722
  Receipt Date: 20150722
  Transmission Date: 20151125
  Serious: Yes (Other)
  Sender: FDA-Public Use
  Company Number: US-ELI_LILLY_AND_COMPANY-US200912002422

PATIENT
  Age: 60 Year
  Sex: Male

DRUGS (3)
  1. PLAVIX [Concomitant]
     Active Substance: CLOPIDOGREL BISULFATE
     Dosage: 300 MG, UNK
     Dates: start: 200912, end: 200912
  2. EFFIENT [Suspect]
     Active Substance: PRASUGREL HYDROCHLORIDE
     Dosage: 10 MG, DAILY (1/D)
     Dates: start: 200911, end: 200912
  3. EFFIENT [Suspect]
     Active Substance: PRASUGREL HYDROCHLORIDE
     Indication: ACUTE CORONARY SYNDROME
     Dosage: UNK, UNK
     Dates: start: 200911, end: 200911

REACTIONS (2)
  - Haemorrhage intracranial [Unknown]
  - Rash [Unknown]

NARRATIVE: CASE EVENT DATE: 2009
